FAERS Safety Report 16854911 (Version 3)
Quarter: 2021Q1

REPORT INFORMATION
  Report Type: Spontaneous
  Country: FR (occurrence: FR)
  Receive Date: 20190926
  Receipt Date: 20210325
  Transmission Date: 20210419
  Serious: Yes (Life-Threatening, Hospitalization, Other)
  Sender: FDA-Public Use
  Company Number: FR-AUROBINDO-AUR-APL-2019-061952

PATIENT
  Age: 33 Year
  Sex: Male

DRUGS (4)
  1. CLONAZEPAM. [Interacting]
     Active Substance: CLONAZEPAM
     Indication: PRODUCT USED FOR UNKNOWN INDICATION
     Dosage: 80 MILLIGRAM, DAILY (MAXIMAL INGESTION: 80MG)
     Route: 048
  2. GABAPENTIN. [Suspect]
     Active Substance: GABAPENTIN
     Indication: PRODUCT USED FOR UNKNOWN INDICATION
     Dosage: 1 GRAM, DAILY (MAXIMAL INGESTION: 1G)
     Route: 048
  3. TRAMADOL. [Suspect]
     Active Substance: TRAMADOL
     Indication: PRODUCT USED FOR UNKNOWN INDICATION
     Dosage: 10 GRAM, DAILY (MAXIMAL INGESTION: 10G)
     Route: 048
  4. HYDROXYZINE [Suspect]
     Active Substance: HYDROXYZINE HYDROCHLORIDE
     Indication: PRODUCT USED FOR UNKNOWN INDICATION
     Dosage: 6 GRAM, DAILY (MAXIMAL INGESTION: 6G)
     Route: 048

REACTIONS (18)
  - Cardiac arrest [Recovered/Resolved]
  - Loss of consciousness [Recovering/Resolving]
  - Cerebral disorder [Unknown]
  - Electrocardiogram QT prolonged [Recovering/Resolving]
  - Intentional overdose [Recovered/Resolved with Sequelae]
  - Acute kidney injury [Recovering/Resolving]
  - Hypothermia [Recovering/Resolving]
  - Shock [Recovered/Resolved]
  - Overdose [Unknown]
  - Pupillary reflex impaired [Recovering/Resolving]
  - Hypotension [Recovering/Resolving]
  - Seizure [Recovering/Resolving]
  - Ventricular tachycardia [Recovered/Resolved]
  - Mydriasis [Recovering/Resolving]
  - Depressed level of consciousness [Recovered/Resolved with Sequelae]
  - Bundle branch block right [Recovering/Resolving]
  - Hypoglycaemia [Recovering/Resolving]
  - Cardiac failure [Recovering/Resolving]
